FAERS Safety Report 24167935 (Version 1)
Quarter: 2024Q3

REPORT INFORMATION
  Report Type: Spontaneous
  Country: US (occurrence: US)
  Receive Date: 20240802
  Receipt Date: 20240802
  Transmission Date: 20241016
  Serious: Yes (Other)
  Sender: LUNDBECK
  Company Number: US-LUNDBECK-DKLU4002448

PATIENT

DRUGS (1)
  1. VYEPTI [Suspect]
     Active Substance: EPTINEZUMAB\EPTINEZUMAB-JJMR
     Indication: Product used for unknown indication
     Route: 041

REACTIONS (7)
  - Loss of consciousness [Unknown]
  - Migraine [Unknown]
  - Nausea [Unknown]
  - Sleep paralysis [Unknown]
  - Abnormal dreams [Unknown]
  - Malaise [Unknown]
  - Fatigue [Unknown]
